FAERS Safety Report 7261511-7 (Version None)
Quarter: 2011Q1

REPORT INFORMATION
  Report Type: 
  Country: None (occurrence: None)
  Receive Date: 20110130
  Receipt Date: 20100929
  Transmission Date: 20110831
  Serious: No
  Sender: FDA-Public Use
  Company Number: US-ABBOTT-10P-163-0675081-00

PATIENT
  Age: 29 Year
  Sex: Female

DRUGS (7)
  1. LAMOTIL [Concomitant]
     Indication: PRODUCT USED FOR UNKNOWN INDICATION
  2. MOBIC [Concomitant]
     Indication: PRODUCT USED FOR UNKNOWN INDICATION
  3. AUGMENTIN '125' [Concomitant]
     Indication: PRODUCT USED FOR UNKNOWN INDICATION
  4. HUMIRA [Suspect]
     Indication: CROHN'S DISEASE
     Dates: start: 20100818
  5. PHENERGAN [Concomitant]
     Indication: PRODUCT USED FOR UNKNOWN INDICATION
  6. VIT D [Concomitant]
     Indication: PRODUCT USED FOR UNKNOWN INDICATION
  7. DARVOCET-N 100 [Concomitant]
     Indication: PRODUCT USED FOR UNKNOWN INDICATION

REACTIONS (1)
  - PHARYNGITIS STREPTOCOCCAL [None]
